FAERS Safety Report 10371248 (Version 1)
Quarter: 2014Q3

REPORT INFORMATION
  Report Type: Spontaneous
  Country: IT (occurrence: None)
  Receive Date: 20140806
  Receipt Date: 20140806
  Transmission Date: 20150326
  Serious: Yes (Hospitalization, Other)
  Sender: FDA-Public Use
  Company Number: 2014AP003771

PATIENT
  Age: 86 Year
  Sex: Male

DRUGS (5)
  1. DEPAKIN CHRONO (VALPROATE SODIUM) PROLONGED-RELEASE TABLET [Suspect]
     Active Substance: VALPROATE SODIUM
     Indication: PRODUCT USED FOR UNKNOWN INDICATION
     Dates: start: 20130613, end: 20140613
  2. URBASON /00049601/ [Suspect]
     Active Substance: METHYLPREDNISOLONE
     Indication: PRODUCT USED FOR UNKNOWN INDICATION
     Dates: start: 20130613, end: 20140613
  3. COUMADINE [Suspect]
     Active Substance: WARFARIN SODIUM
     Indication: PRODUCT USED FOR UNKNOWN INDICATION
     Dates: start: 20140422, end: 20140613
  4. ZYLORIC [Suspect]
     Active Substance: ALLOPURINOL
     Indication: PRODUCT USED FOR UNKNOWN INDICATION
     Dates: start: 20130613, end: 20130613
  5. PAROXETINE [Suspect]
     Active Substance: PAROXETINE\PAROXETINE HYDROCHLORIDE
     Indication: PRODUCT USED FOR UNKNOWN INDICATION
     Dates: start: 20130613, end: 20140613

REACTIONS (4)
  - Anaemia [None]
  - Melaena [None]
  - Syncope [None]
  - International normalised ratio increased [None]

NARRATIVE: CASE EVENT DATE: 20140613
